FAERS Safety Report 24030947 (Version 1)
Quarter: 2024Q2

REPORT INFORMATION
  Report Type: Spontaneous
  Country: US (occurrence: US)
  Receive Date: 20240628
  Receipt Date: 20240628
  Transmission Date: 20240716
  Serious: Yes (Other)
  Sender: FDA-Public Use
  Company Number: US-MLMSERVICE-20240416-PI028118-00117-1

PATIENT
  Age: 19 Year
  Sex: Female

DRUGS (7)
  1. DEXAMETHASONE [Suspect]
     Active Substance: DEXAMETHASONE
     Indication: Angiocentric lymphoma
     Dosage: CYCLICAL, DAYS 2, 3, AND 4
     Route: 065
  2. ETOPOSIDE [Suspect]
     Active Substance: ETOPOSIDE
     Indication: Angiocentric lymphoma
     Dosage: CYCLICAL, DAYS 2, 3, AND 4, OF 21 DAYS CYCLE
     Route: 065
  3. IFOSFAMIDE [Suspect]
     Active Substance: IFOSFAMIDE
     Indication: Angiocentric lymphoma
     Dosage: CYCLICAL, DAYS 2,3, AND 4 DAY
     Route: 065
  4. LEUCOVORIN [Suspect]
     Active Substance: LEUCOVORIN\LEUCOVORIN CALCIUM
     Indication: Angiocentric lymphoma
     Dosage: CYCLICAL, DAYS 2, 3, AND 4 DAYS
     Route: 065
  5. MESNA [Suspect]
     Active Substance: MESNA
     Indication: Angiocentric lymphoma
     Dosage: CYCLICAL, DAYS 2, 3, AND 4 DAY
     Route: 065
  6. METHOTREXATE [Suspect]
     Active Substance: METHOTREXATE
     Indication: Angiocentric lymphoma
     Dosage: CYCLICAL, DAYS 1, 2, 3, AND 4 DAYS
     Route: 065
  7. PEG/L-ASPARAGINASE [Suspect]
     Active Substance: PEGASPARGASE
     Indication: Angiocentric lymphoma
     Dosage: ONE CYCLE, 1500 U/M2 APPROXIMATELY DAY 7 (RANGE: FROM DAY 5 TO 31)
     Route: 065

REACTIONS (3)
  - Mucosal inflammation [Unknown]
  - Oral candidiasis [Unknown]
  - Clostridium difficile infection [Unknown]
